FAERS Safety Report 5385621-4 (Version None)
Quarter: 2007Q3

REPORT INFORMATION
  Report Type: 
  Country: None (occurrence: None)
  Receive Date: 20070712
  Receipt Date: 20070702
  Transmission Date: 20080115
  Serious: Yes (Hospitalization, Disabling, Other)
  Sender: FDA-Public Use
  Company Number: US-ASTRAZENECA-2007UW02614

PATIENT
  Age: 19037 Day
  Sex: Male
  Weight: 118.2 kg

DRUGS (23)
  1. SEROQUEL [Suspect]
     Indication: BIPOLAR DISORDER
     Route: 048
     Dates: start: 20031201
  2. SEROQUEL [Suspect]
     Indication: DEPRESSION
     Route: 048
     Dates: start: 20031201
  3. SEROQUEL [Suspect]
     Route: 048
  4. SEROQUEL [Suspect]
     Route: 048
  5. FLUOXETINE [Concomitant]
     Indication: BIPOLAR DISORDER
     Dates: start: 20031201
  6. EFFEXOR [Concomitant]
     Indication: DEPRESSION
     Route: 048
  7. PROZAC [Concomitant]
     Indication: DEPRESSION
  8. PERCOCET [Concomitant]
     Indication: PAIN
     Dosage: 5/325 ONE TO TWO Q6H
     Route: 048
  9. ASPIRIN [Concomitant]
     Route: 048
  10. LASIX [Concomitant]
     Route: 048
  11. FOLIC ACID [Concomitant]
     Route: 048
  12. PEPCID [Concomitant]
     Route: 048
  13. RAPAMUNE [Concomitant]
     Route: 048
  14. RESTORIL [Concomitant]
     Route: 048
  15. LANTUS [Concomitant]
     Route: 058
  16. MAGNESIUM OXIDE [Concomitant]
     Route: 048
  17. CALCIUM CHLORIDE [Concomitant]
     Route: 048
  18. PROGRAF [Concomitant]
     Route: 048
  19. PREDNISONE [Concomitant]
     Route: 048
  20. ALENDRONATE SODIUM [Concomitant]
     Route: 048
  21. TEMAZEPAM [Concomitant]
  22. NORVASC [Concomitant]
  23. INSULIN [Concomitant]
     Indication: TYPE 2 DIABETES MELLITUS

REACTIONS (14)
  - ARTERIAL DISORDER [None]
  - BRONCHITIS [None]
  - BUNDLE BRANCH BLOCK RIGHT [None]
  - CELLULITIS [None]
  - CHEST PAIN [None]
  - DIABETES MELLITUS [None]
  - DIABETIC KETOACIDOSIS [None]
  - FRACTURE [None]
  - INFECTION [None]
  - LACERATION [None]
  - LYMPHANGITIS [None]
  - OSTEOARTHRITIS [None]
  - RENAL FAILURE [None]
  - SINUSITIS [None]
